FAERS Safety Report 8135689-7 (Version None)
Quarter: 2012Q1

REPORT INFORMATION
  Report Type: 
  Country: None (occurrence: None)
  Receive Date: 20120210
  Receipt Date: 20120126
  Transmission Date: 20120608
  Serious: Yes (Hospitalization)
  Sender: FDA-Public Use
  Company Number: FRA-CLT-2012001

PATIENT
  Sex: Male

DRUGS (11)
  1. CALCIUM SANDOZ -CALCIUM [Concomitant]
  2. BECILAN -PYRIDOXINE [Concomitant]
  3. SPECIAFOLDINE -CARBAMAZEPINE [Concomitant]
  4. VITAMIN B-12 [Concomitant]
  5. CYSTADANE [Suspect]
     Indication: HOMOCYSTINURIA
     Dosage: 3 G EVERY DAY
     Route: 048
     Dates: start: 20000101
  6. PLAVIX [Concomitant]
  7. CYSTINE B6 -L-CYSTINE [Concomitant]
  8. PRAVASTATIN [Concomitant]
  9. TEGRETOL [Concomitant]
  10. SPECIAFOLDINE -FOLIC ACID [Concomitant]
  11. FORTEO [Concomitant]

REACTIONS (5)
  - INFLUENZA [None]
  - VARICOSE ULCERATION [None]
  - DERMAL CYST [None]
  - HAEMATURIA [None]
  - OSTEONECROSIS OF JAW [None]
